FAERS Safety Report 16182319 (Version 2)
Quarter: 2019Q2

REPORT INFORMATION
  Report Type: Report from Study
  Country: None (occurrence: SI)
  Receive Date: 20190410
  Receipt Date: 20190430
  Transmission Date: 20190711
  Serious: Yes (Hospitalization, Other)
  Sender: FDA-Public Use
  Company Number: SI-ABBVIE-19P-261-2737347-00

PATIENT
  Age: 81 Year
  Sex: Female
  Weight: 48.5 kg

DRUGS (10)
  1. ASTONIN H [Concomitant]
     Indication: ORTHOSTATIC HYPOTENSION
     Route: 048
     Dates: start: 201709
  2. ASENTRA [Concomitant]
     Active Substance: SERTRALINE HYDROCHLORIDE
     Indication: ANXIETY
     Route: 048
     Dates: start: 201709
  3. DUODOPA [Suspect]
     Active Substance: CARBIDOPA\LEVODOPA
     Indication: PARKINSON^S DISEASE
     Dosage: TITRATION: DOSING AT END OF TITRATION; MD: 9 ML, CD: 3.4 ML/H. ED: 2 ML, 1X/D, 16 H
     Route: 050
     Dates: start: 20170904, end: 20170905
  4. PANTOPRAZOL [Concomitant]
     Active Substance: PANTOPRAZOLE SODIUM
     Indication: GASTRIC PH DECREASED
     Route: 048
     Dates: start: 20170905, end: 20190405
  5. EXELON [Concomitant]
     Active Substance: RIVASTIGMINE TARTRATE
     Indication: PARKINSON^S DISEASE
     Dosage: 9.5 MG/HOUR
     Route: 062
     Dates: start: 201709
  6. SULFESA [Concomitant]
     Indication: INCONTINENCE
     Route: 048
     Dates: start: 201709
  7. MIRAPEXIN [Concomitant]
     Active Substance: PRAMIPEXOLE
     Indication: PARKINSON^S DISEASE
     Route: 048
     Dates: start: 2015
  8. DUODOPA [Suspect]
     Active Substance: CARBIDOPA\LEVODOPA
     Dosage: CD AT TIME OF EVENT: 4.4 ML/H, 16 H CONTINUOUS
     Route: 050
     Dates: start: 20170905, end: 20190405
  9. MADOPAR [Concomitant]
     Active Substance: BENSERAZIDE HYDROCHLORIDE\LEVODOPA
     Indication: PARKINSON^S DISEASE
     Dosage: 200/50 MG; EVERY MORNING + EVERY EVENING BEFORE SLEEP
     Route: 048
     Dates: start: 2014
  10. FOLACIN [Concomitant]
     Indication: BLOOD FOLATE DECREASED
     Route: 048
     Dates: start: 201709

REACTIONS (1)
  - Gastric ulcer [Recovered/Resolved]

NARRATIVE: CASE EVENT DATE: 20190405
